FAERS Safety Report 13831534 (Version 2)
Quarter: 2017Q3

REPORT INFORMATION
  Report Type: Report from Study
  Country: US (occurrence: US)
  Receive Date: 20170803
  Receipt Date: 20170804
  Transmission Date: 20171127
  Serious: Yes (Death)
  Sender: FDA-Public Use
  Company Number: US-B.I. PHARMACEUTICALS,INC./RIDGEFIELD-2017-BI-042954

PATIENT
  Age: 85 Year
  Sex: Female

DRUGS (1)
  1. MICARDIS HCT [Suspect]
     Active Substance: HYDROCHLOROTHIAZIDE\TELMISARTAN
     Indication: PRODUCT USED FOR UNKNOWN INDICATION
     Dosage: 1 TIME PER DAY;  FORM STRENGTH: 40 MG / 12.5 MG; DOSE AND DAILY DOSE-40 MG /12.5 MG
     Route: 048
     Dates: start: 20140327

REACTIONS (1)
  - Cardiac failure congestive [Fatal]

NARRATIVE: CASE EVENT DATE: 20170729
